FAERS Safety Report 7818103-8 (Version None)
Quarter: 2011Q4

REPORT INFORMATION
  Report Type: 
  Country: None (occurrence: None)
  Receive Date: 20111017
  Receipt Date: 20111007
  Transmission Date: 20120403
  Serious: Yes (Other)
  Sender: FDA-Public Use
  Company Number: DE-TEVA-304380GER

PATIENT
  Age: 42 Year
  Sex: Female
  Weight: 72 kg

DRUGS (3)
  1. OXCARBAZEPINE [Suspect]
     Indication: EPILEPSY
     Dosage: 600 MILLIGRAM;
     Route: 048
     Dates: start: 20101212, end: 20110210
  2. INTERFERON [Concomitant]
     Indication: HEPATITIS C
     Route: 065
  3. FOLIC ACID [Concomitant]
     Indication: PROPHYLAXIS OF NEURAL TUBE DEFECT
     Dosage: .4 MILLIGRAM;
     Route: 048
     Dates: start: 20110124

REACTIONS (1)
  - ABORTION MISSED [None]
